FAERS Safety Report 14071753 (Version 2)
Quarter: 2019Q3

REPORT INFORMATION
  Report Type: Spontaneous
  Country: US (occurrence: US)
  Receive Date: 20171010
  Receipt Date: 20190909
  Transmission Date: 20191004
  Serious: No
  Sender: FDA-Public Use
  Company Number: US-SA-2017SA153831

PATIENT
  Age: 59 Year
  Sex: Female

DRUGS (12)
  1. EUCRISA [Concomitant]
     Active Substance: CRISABOROLE
  2. HYDROXYZINE HCL [Concomitant]
     Active Substance: HYDROXYZINE HYDROCHLORIDE
  3. VENTOLIN HFA [Concomitant]
     Active Substance: ALBUTEROL SULFATE
  4. LEVOCETIRIZINE DIHYDROCHLORIDE. [Concomitant]
     Active Substance: LEVOCETIRIZINE DIHYDROCHLORIDE
  5. EZETIMIBE. [Concomitant]
     Active Substance: EZETIMIBE
  6. DILTIAZEM. [Concomitant]
     Active Substance: DILTIAZEM
  7. CARVEDILOL. [Concomitant]
     Active Substance: CARVEDILOL
  8. ETODOLAC. [Concomitant]
     Active Substance: ETODOLAC
  9. DUPIXENT [Suspect]
     Active Substance: DUPILUMAB
     Indication: DERMATITIS ATOPIC
     Dosage: 1 DF,QOW
     Route: 058
     Dates: start: 20170524
  10. PANTOPRAZOLE SODIUM. [Concomitant]
     Active Substance: PANTOPRAZOLE SODIUM
  11. CYCLOBENZAPRINE. [Concomitant]
     Active Substance: CYCLOBENZAPRINE
  12. CARTIA [ACETYLSALICYLIC ACID] [Concomitant]

REACTIONS (2)
  - Influenza [Unknown]
  - Dermatitis atopic [Recovered/Resolved]
